FAERS Safety Report 11981792 (Version 1)
Quarter: 2016Q1

REPORT INFORMATION
  Report Type: Spontaneous
  Country: CA (occurrence: CA)
  Receive Date: 20160201
  Receipt Date: 20160201
  Transmission Date: 20160526
  Serious: Yes (Other)
  Sender: FDA-Public Use
  Company Number: CA-TEVA-629626ACC

PATIENT
  Age: 53 Year
  Sex: Female
  Weight: 71 kg

DRUGS (4)
  1. DEXAMETHASONE. [Concomitant]
     Active Substance: DEXAMETHASONE
  2. GEMCITABINE [Suspect]
     Active Substance: GEMCITABINE\GEMCITABINE HYDROCHLORIDE
     Indication: OVARIAN CANCER
     Dosage: 3 MILLIGRAM/MILLILITERS DAILY;
     Route: 065
  3. ONDANSETRON [Concomitant]
     Active Substance: ONDANSETRON
  4. CARBOPLATIN. [Concomitant]
     Active Substance: CARBOPLATIN
     Route: 042

REACTIONS (3)
  - Blood pressure increased [Recovered/Resolved]
  - Erythema [Recovered/Resolved]
  - Feeling hot [Recovered/Resolved]
